FAERS Safety Report 22156290 (Version 6)
Quarter: 2024Q4

REPORT INFORMATION
  Report Type: Spontaneous
  Country: US (occurrence: US)
  Receive Date: 20230330
  Receipt Date: 20241001
  Transmission Date: 20250115
  Serious: No
  Sender: SANOFI AVENTIS
  Company Number: US-SA-SAC20230327001240

PATIENT
  Sex: Female

DRUGS (1)
  1. DUPIXENT [Suspect]
     Active Substance: DUPILUMAB
     Indication: Dermatitis atopic
     Dosage: 300 MG, QOW
     Route: 058
     Dates: start: 20210721

REACTIONS (5)
  - Skin exfoliation [Unknown]
  - Pruritus [Unknown]
  - Dermatitis atopic [Recovered/Resolved]
  - Drug ineffective [Recovered/Resolved]
  - Dermatitis atopic [Unknown]
